FAERS Safety Report 5130826-0 (Version None)
Quarter: 2006Q4

REPORT INFORMATION
  Report Type: 
  Country: None (occurrence: None)
  Receive Date: 20061013
  Receipt Date: 20050112
  Transmission Date: 20070319
  Serious: Yes (Hospitalization)
  Sender: FDA-Public Use
  Company Number: 205525

PATIENT
  Age: 55 Year
  Sex: Female
  Weight: 52.1637 kg

DRUGS (2)
  1. AVONEX [Suspect]
     Indication: MULTIPLE SCLEROSIS
     Dosage: 30 UG; QW; IM
     Route: 030
     Dates: start: 19960901
  2. AVONEX [Suspect]
     Indication: MULTIPLE SCLEROSIS

REACTIONS (8)
  - ATROPHY [None]
  - CONDITION AGGRAVATED [None]
  - DECUBITUS ULCER [None]
  - MOBILITY DECREASED [None]
  - MULTIPLE SCLEROSIS [None]
  - SKIN GRAFT [None]
  - SKIN GRAFT INFECTION [None]
  - WOUND INFECTION [None]
